FAERS Safety Report 10761634 (Version 1)
Quarter: 2015Q1

REPORT INFORMATION
  Report Type: Spontaneous
  Country: US (occurrence: None)
  Receive Date: 20150203
  Receipt Date: 20150203
  Transmission Date: 20150721
  Serious: Yes (Disabling)
  Sender: FDA-Public Use
  Company Number: None

PATIENT
  Age: 76 Year
  Sex: Female
  Weight: 85.73 kg

DRUGS (3)
  1. EXEMESTANE 25 MG [Suspect]
     Active Substance: EXEMESTANE
     Indication: HORMONE THERAPY
     Route: 048
  2. EXEMESTANE 25 MG [Suspect]
     Active Substance: EXEMESTANE
     Indication: BREAST CANCER
     Route: 048
  3. EXEMESTANE 25 MG [Suspect]
     Active Substance: EXEMESTANE
     Indication: SURGERY
     Route: 048

REACTIONS (6)
  - Cough [None]
  - Insomnia [None]
  - Unevaluable event [None]
  - Abasia [None]
  - Abdominal discomfort [None]
  - Pain in extremity [None]

NARRATIVE: CASE EVENT DATE: 20140501
